FAERS Safety Report 5324035-X (Version None)
Quarter: 2007Q2

REPORT INFORMATION
  Report Type: 
  Country: None (occurrence: None)
  Receive Date: 20070514
  Receipt Date: 20070423
  Transmission Date: 20071010
  Serious: Yes (Disabling)
  Sender: FDA-Public Use
  Company Number: TW-JNJFOC-20070401061

PATIENT
  Sex: Female

DRUGS (7)
  1. IMODIUM [Suspect]
     Indication: DIARRHOEA
     Route: 048
  2. IMODIUM [Suspect]
     Route: 048
  3. BUTYLSCOPOLAMINE [Suspect]
     Indication: GASTROINTESTINAL PAIN
     Route: 030
  4. PANADOL [Concomitant]
     Route: 065
  5. COLIOPAN [Concomitant]
     Route: 065
  6. BALUNA [Concomitant]
     Route: 065
  7. NOVAMIN [Concomitant]
     Route: 065

REACTIONS (1)
  - FLUSHING [None]
